FAERS Safety Report 6307608-7 (Version None)
Quarter: 2009Q3

REPORT INFORMATION
  Report Type: 
  Country: None (occurrence: None)
  Receive Date: 20090811
  Receipt Date: 20090731
  Transmission Date: 20100115
  Serious: Yes (Hospitalization)
  Sender: FDA-Public Use
  Company Number: GXKR2009US08799

PATIENT
  Age: 42 Year
  Sex: Female

DRUGS (7)
  1. TRIAMCINOLONE [Suspect]
     Indication: ROTATOR CUFF SYNDROME
     Dosage: 40 MG IN RIGHT SUBACROMIAL SPACE, INJECTION NOS
     Route: 042
  2. RITONAVIR [Suspect]
     Indication: HIV INFECTION
     Dosage: 100 MG, DAILY
  3. EMTRICITABINE (EMTRICITABINE) [Concomitant]
  4. TENOFOVIR DISOPROXIL FUMARATE [Concomitant]
  5. ATAZANAVIR SULFATE [Concomitant]
  6. LAMIVUDINE + ZIDOVUDINE [Concomitant]
  7. EFAVIRENZ [Concomitant]

REACTIONS (10)
  - ADRENAL SUPPRESSION [None]
  - AGITATION [None]
  - BLOOD PRESSURE INCREASED [None]
  - DRUG INTERACTION [None]
  - INCREASED APPETITE [None]
  - INSOMNIA [None]
  - PALPITATIONS [None]
  - TEMPERATURE INTOLERANCE [None]
  - VISION BLURRED [None]
  - WEIGHT INCREASED [None]
